FAERS Safety Report 9495710 (Version 1)
Quarter: 2013Q3

REPORT INFORMATION
  Report Type: Spontaneous
  Country: CN (occurrence: CN)
  Receive Date: 20130903
  Receipt Date: 20130903
  Transmission Date: 20140515
  Serious: No
  Sender: FDA-Public Use
  Company Number: CN-JNJFOC-20130815734

PATIENT
  Sex: 0

DRUGS (2)
  1. FENTANYL [Suspect]
     Indication: FRACTURE PAIN
     Route: 062
  2. ULTRACET [Suspect]
     Indication: FRACTURE PAIN
     Route: 048

REACTIONS (3)
  - Nausea [Recovered/Resolved]
  - Vomiting [Recovered/Resolved]
  - Wrong technique in drug usage process [Unknown]
